FAERS Safety Report 25500073 (Version 1)
Quarter: 2025Q3

REPORT INFORMATION
  Report Type: Spontaneous
  Country: US (occurrence: None)
  Receive Date: 20250701
  Receipt Date: 20250701
  Transmission Date: 20251021
  Serious: Yes (Other)
  Sender: FDA-CTU
  Company Number: None

PATIENT
  Sex: Female
  Weight: 99 kg

DRUGS (17)
  1. ENBREL [Suspect]
     Active Substance: ETANERCEPT
     Indication: Rheumatoid arthritis
     Dates: start: 20250503, end: 20250620
  2. PREGABALIN [Concomitant]
     Active Substance: PREGABALIN
  3. TIZANIDINE [Concomitant]
     Active Substance: TIZANIDINE
  4. NORCO [Concomitant]
     Active Substance: ACETAMINOPHEN\HYDROCODONE BITARTRATE
  5. BUTRANS [Concomitant]
     Active Substance: BUPRENORPHINE
  6. NURTEC ODT [Concomitant]
     Active Substance: RIMEGEPANT SULFATE
  7. MAXALT [Concomitant]
     Active Substance: RIZATRIPTAN BENZOATE
  8. JANUVIA [Concomitant]
     Active Substance: SITAGLIPTIN PHOSPHATE
  9. LOVAZA [Concomitant]
     Active Substance: OMEGA-3-ACID ETHYL ESTERS
  10. PILOCARPINE [Concomitant]
     Active Substance: PILOCARPINE
  11. MODAFINIL [Concomitant]
     Active Substance: MODAFINIL
  12. LUNESTA [Concomitant]
     Active Substance: ESZOPICLONE
  13. HYDROXYZINE [Concomitant]
     Active Substance: HYDROXYZINE HYDROCHLORIDE
  14. OMEPRAZOLE [Concomitant]
     Active Substance: OMEPRAZOLE
  15. ALGAE-CAL [Concomitant]
  16. CANNABIDIOL [Concomitant]
     Active Substance: CANNABIDIOL
  17. ANTIHISTAMINES NOS [Concomitant]
     Active Substance: ANTIHISTAMINES NOS

REACTIONS (2)
  - Tooth abscess [None]
  - Tooth infection [None]
